FAERS Safety Report 9709688 (Version 1)
Quarter: 2013Q4

REPORT INFORMATION
  Report Type: Report from Study
  Country: BD (occurrence: BD)
  Receive Date: 20131126
  Receipt Date: 20131126
  Transmission Date: 20140711
  Serious: Yes (Death, Hospitalization)
  Sender: FDA-Public Use
  Company Number: PHHY2013BD135947

PATIENT
  Age: 84 Year
  Sex: Female

DRUGS (3)
  1. ACLASTA [Suspect]
     Indication: OSTEOPOROSIS
     Dosage: UNK ONCE YEARLY
     Route: 042
     Dates: start: 20100809
  2. ACLASTA [Suspect]
     Dosage: UNK ONCE YEARLY
     Route: 042
  3. ACLASTA [Suspect]
     Dosage: UNK ONCE YEARLY
     Route: 042
     Dates: start: 20120919

REACTIONS (3)
  - Dyspnoea [Fatal]
  - Fall [Unknown]
  - Head injury [Unknown]
